FAERS Safety Report 21978524 (Version 1)
Quarter: 2023Q1

REPORT INFORMATION
  Report Type: Spontaneous
  Country: US (occurrence: US)
  Receive Date: 20230210
  Receipt Date: 20230210
  Transmission Date: 20230418
  Serious: Yes (Life-Threatening, Hospitalization, Other)
  Sender: FDA-Public Use
  Company Number: US-APOTEX-2023AP002772

PATIENT
  Age: 69 Year
  Sex: Male

DRUGS (5)
  1. ENOXAPARIN [Suspect]
     Active Substance: ENOXAPARIN
     Indication: Prophylaxis
     Dosage: 40 MILLIGRAM, QD
     Route: 058
  2. ENOXAPARIN [Suspect]
     Active Substance: ENOXAPARIN
     Indication: Thrombosis prophylaxis
     Dosage: UNK WEIGHT-BASED (1 MG/KG)
     Route: 065
  3. ASPIRIN [Suspect]
     Active Substance: ASPIRIN
     Indication: Coronary artery disease
     Dosage: 81 MILLIGRAM, QD
     Route: 065
  4. HYDROXYCHLOROQUINE [Concomitant]
     Active Substance: HYDROXYCHLOROQUINE
     Indication: Product used for unknown indication
     Dosage: UNK
     Route: 065
  5. AZITHROMYCIN [Concomitant]
     Active Substance: AZITHROMYCIN
     Indication: Product used for unknown indication
     Dosage: UNK
     Route: 065

REACTIONS (4)
  - Hypovolaemic shock [Recovering/Resolving]
  - Haematoma muscle [Recovering/Resolving]
  - Retroperitoneal haemorrhage [Recovered/Resolved]
  - Arterial haemorrhage [Recovered/Resolved]
